FAERS Safety Report 24310439 (Version 1)
Quarter: 2024Q3

REPORT INFORMATION
  Report Type: Spontaneous
  Country: US (occurrence: None)
  Receive Date: 20240912
  Receipt Date: 20240912
  Transmission Date: 20241017
  Serious: No
  Sender: ASTRAZENECA
  Company Number: 2024A197770

PATIENT
  Age: 31110 Day
  Sex: Female

DRUGS (1)
  1. BYDUREON BCISE [Suspect]
     Active Substance: EXENATIDE

REACTIONS (5)
  - Irritability [Not Recovered/Not Resolved]
  - Injection site haemorrhage [Not Recovered/Not Resolved]
  - Device leakage [Not Recovered/Not Resolved]
  - Incorrect dose administered [Unknown]
  - Device use issue [Unknown]

NARRATIVE: CASE EVENT DATE: 20240829
